FAERS Safety Report 10670523 (Version 2)
Quarter: 2014Q4

REPORT INFORMATION
  Report Type: Spontaneous
  Country: DE (occurrence: None)
  Receive Date: 20141219
  Receipt Date: 20141229
  Transmission Date: 20150529
  Serious: Yes (Death, Hospitalization, Other)
  Sender: FDA-Public Use
  Company Number: ADR-2014-02380

PATIENT
  Age: 21 Year
  Sex: Male

DRUGS (2)
  1. ALCOHOL (ETHANOL) [Suspect]
     Active Substance: ALCOHOL
  2. BACLOFEN. [Suspect]
     Active Substance: BACLOFEN

REACTIONS (10)
  - Hypotension [None]
  - Brain death [None]
  - Completed suicide [None]
  - Dialysis [None]
  - Cardiac arrest [None]
  - Alcohol poisoning [None]
  - Rhabdomyolysis [None]
  - Brain injury [None]
  - Intentional overdose [None]
  - Acute kidney injury [None]

NARRATIVE: CASE EVENT DATE: 20140101
